FAERS Safety Report 13338426 (Version 1)
Quarter: 2017Q1

REPORT INFORMATION
  Report Type: Spontaneous
  Country: US (occurrence: US)
  Receive Date: 20170315
  Receipt Date: 20170315
  Transmission Date: 20170428
  Serious: Yes (Hospitalization)
  Sender: FDA-Public Use
  Company Number: US-PFIZER INC-2016404500

PATIENT
  Age: 94 Year
  Sex: Male
  Weight: 76.2 kg

DRUGS (1)
  1. SUTENT [Suspect]
     Active Substance: SUNITINIB MALATE
     Indication: RENAL CANCER
     Dosage: 25 MG, CYCLIC (TAKE ONE DAILY FOR 3 WEEKS FOLLOWED BY A 3 WEEK BREAK)
     Route: 048
     Dates: end: 20170303

REACTIONS (2)
  - Gastritis [Unknown]
  - Abdominal pain upper [Unknown]
